FAERS Safety Report 26213524 (Version 1)
Quarter: 2025Q4

REPORT INFORMATION
  Report Type: Spontaneous
  Country: US (occurrence: US)
  Receive Date: 20251230
  Receipt Date: 20251230
  Transmission Date: 20260119
  Serious: No
  Sender: BLUEPRINT MEDICINES
  Company Number: US-Blueprint Medicines Corporation-2025-AER-02783

PATIENT
  Age: 64 Year
  Sex: Female

DRUGS (1)
  1. AYVAKIT [Suspect]
     Active Substance: AVAPRITINIB
     Indication: Gastrointestinal stromal tumour
     Route: 065
     Dates: start: 20251115

REACTIONS (6)
  - Ageusia [Unknown]
  - Taste disorder [Unknown]
  - Full blood count abnormal [Unknown]
  - Parosmia [Unknown]
  - Periorbital swelling [Unknown]
  - Disturbance in attention [Unknown]
